FAERS Safety Report 10156564 (Version 5)
Quarter: 2014Q4

REPORT INFORMATION
  Report Type: Report from Study
  Country: US (occurrence: None)
  Receive Date: 20140505
  Receipt Date: 20141023
  Transmission Date: 20150528
  Serious: Yes (Hospitalization)
  Sender: FDA-Public Use
  Company Number: 2316852

PATIENT
  Age: 45 Year
  Sex: Female
  Weight: 143.8 kg

DRUGS (12)
  1. LISINOPRIL. [Concomitant]
     Active Substance: LISINOPRIL
  2. METFORMIN [Concomitant]
     Active Substance: METFORMIN HYDROCHLORIDE
  3. PROCHLORPERAZINE. [Concomitant]
     Active Substance: PROCHLORPERAZINE
  4. GEMCITABINE [Suspect]
     Active Substance: GEMCITABINE\GEMCITABINE HYDROCHLORIDE
     Indication: SARCOMA METASTATIC
     Dosage: 900 MG/M 2 MILLIGRAM(S)/SQ. METER ( CYCLICAL ), INTRAVENOUS DRIP (21 DAYS)
     Route: 041
     Dates: start: 20140211, end: 20140303
  5. DOCETAXEL. [Suspect]
     Active Substance: DOCETAXEL
     Indication: SARCOMA METASTATIC
     Dosage: 56.25 MG/M 2 MILLIGRAM(S)/SQ. METER (CYCLICAL), INTRAVENOUS DRIP (70 DAYS)?
     Route: 041
     Dates: start: 20140311, end: 20140519
  6. INVESTIGATIONAL DRUG [Suspect]
     Active Substance: INVESTIGATIONAL PRODUCT
     Indication: SARCOMA METASTATIC
     Route: 041
     Dates: start: 20140211, end: 20140813
  7. LORAZEPAM. [Concomitant]
     Active Substance: LORAZEPAM
  8. OMEPRAZOLE. [Concomitant]
     Active Substance: OMEPRAZOLE
  9. GEMCITABINE [Suspect]
     Active Substance: GEMCITABINE\GEMCITABINE HYDROCHLORIDE
     Dosage: 900 MG/M 2 MILLIGRAM(S)/SQ. METER ( CYCLICAL ), INTRAVENOUS DRIP (21 DAYS)
     Route: 041
     Dates: start: 20140211, end: 20140303
  10. ONDANSETRON [Concomitant]
     Active Substance: ONDANSETRON
  11. OXYCODONE [Concomitant]
     Active Substance: OXYCODONE
  12. SALBUTAMOL [Concomitant]
     Active Substance: ALBUTEROL

REACTIONS (22)
  - Neutropenic sepsis [None]
  - Diarrhoea [None]
  - Blood glucose increased [None]
  - Systemic inflammatory response syndrome [None]
  - Alanine aminotransferase increased [None]
  - Aspartate aminotransferase increased [None]
  - Hypovolaemia [None]
  - Nausea [None]
  - Pericardial effusion [None]
  - Dyspnoea [None]
  - Fluid overload [None]
  - Hepatic steatosis [None]
  - Blood albumin decreased [None]
  - Skin candida [None]
  - Anaemia [None]
  - Dehydration [None]
  - Tachycardia [None]
  - Protein total decreased [None]
  - Platelet count decreased [None]
  - Cellulitis [None]
  - Vomiting [None]
  - Acute kidney injury [None]

NARRATIVE: CASE EVENT DATE: 20140403
